FAERS Safety Report 19144533 (Version 1)
Quarter: 2021Q2

REPORT INFORMATION
  Report Type: Spontaneous
  Country: US (occurrence: US)
  Receive Date: 20210416
  Receipt Date: 20210416
  Transmission Date: 20210717
  Serious: Yes (Other)
  Sender: FDA-Public Use
  Company Number: US-SHILPA MEDICARE LIMITED-SML-US-2021-00418

PATIENT
  Age: 50 Year
  Sex: Female

DRUGS (2)
  1. CAPECITABINE, UNKNOWN [Suspect]
     Active Substance: CAPECITABINE
     Indication: PITUITARY TUMOUR BENIGN
     Dosage: 1500 MG/M2/DAY (MAXIMUM DAILY DOSE OF 2500 MG) DIVIDED INTO 2 DOSES ON DAYS 1 TO 14 OF A 28 DAY CYCL
     Route: 065
  2. TEMOZOLOMIDE. [Suspect]
     Active Substance: TEMOZOLOMIDE
     Indication: PITUITARY TUMOUR BENIGN
     Dosage: 150 TO 200 MG/M2/DAY DIVIDED INTO 2 DOSES ON DAYS 10 TO 14 OF A 28 DAY CYCLE
     Route: 065

REACTIONS (1)
  - Disease progression [Unknown]
